FAERS Safety Report 15747770 (Version 1)
Quarter: 2018Q4

REPORT INFORMATION
  Report Type: Spontaneous
  Country: US (occurrence: US)
  Receive Date: 20181221
  Receipt Date: 20181221
  Transmission Date: 20190205
  Serious: Yes (Other)
  Sender: FDA-Public Use
  Company Number: US-JNJFOC-20181140683

PATIENT
  Sex: Female
  Weight: 58 kg

DRUGS (9)
  1. IMBRUVICA [Suspect]
     Active Substance: IBRUTINIB
     Indication: NON-HODGKIN^S LYMPHOMA
     Route: 048
  2. ASPIR 81 [Concomitant]
     Route: 048
     Dates: start: 20180214
  3. SIMVASTATIN. [Concomitant]
     Active Substance: SIMVASTATIN
     Route: 048
     Dates: start: 20180214
  4. BUDESONIDE. [Concomitant]
     Active Substance: BUDESONIDE
     Dates: start: 20180214
  5. POTASSIUM CHLORIDE. [Concomitant]
     Active Substance: POTASSIUM CHLORIDE
     Route: 048
     Dates: start: 20180214
  6. BUMETANIDE. [Concomitant]
     Active Substance: BUMETANIDE
     Route: 048
     Dates: start: 20180214
  7. PLAVIX [Concomitant]
     Active Substance: CLOPIDOGREL BISULFATE
     Route: 048
     Dates: start: 20180214
  8. PREDNISONE. [Concomitant]
     Active Substance: PREDNISONE
     Route: 048
     Dates: start: 20180214
  9. IMBRUVICA [Suspect]
     Active Substance: IBRUTINIB
     Indication: NON-HODGKIN^S LYMPHOMA
     Route: 048
     Dates: start: 20180413

REACTIONS (7)
  - Pleural effusion [Unknown]
  - Hypochromic anaemia [Unknown]
  - Iron deficiency anaemia [Unknown]
  - Night sweats [Unknown]
  - Incorrect dose administered [Unknown]
  - Off label use [Unknown]
  - Lymphadenopathy [Unknown]
